FAERS Safety Report 17825712 (Version 1)
Quarter: 2020Q2

REPORT INFORMATION
  Report Type: Spontaneous
  Country: CA (occurrence: CA)
  Receive Date: 20200526
  Receipt Date: 20200526
  Transmission Date: 20200714
  Serious: Yes (Life-Threatening, Other)
  Sender: FDA-Public Use
  Company Number: CA-TEVA-2020-CA-1239088

PATIENT
  Age: 5 Year
  Sex: Male
  Weight: 17 kg

DRUGS (13)
  1. ONDANSETRON [Concomitant]
     Active Substance: ONDANSETRON
  2. SEPTRA [Concomitant]
     Active Substance: SULFAMETHOXAZOLE\TRIMETHOPRIM
  3. VENTOLINE [SALBUTAMOL] [Concomitant]
     Active Substance: ALBUTEROL SULFATE
  4. FLOVENT HFA [Concomitant]
     Active Substance: FLUTICASONE PROPIONATE
     Dosage: METERED-DOSE (AEROSOL)
  5. ETOPOSIDE. [Suspect]
     Active Substance: ETOPOSIDE
     Indication: EWING^S SARCOMA
     Dosage: 76 MILLIGRAM DAILY;
     Route: 042
  6. LACTULOSE. [Concomitant]
     Active Substance: LACTULOSE
  7. MORPHINE [Concomitant]
     Active Substance: MORPHINE
  8. PEG 3350 [Concomitant]
     Active Substance: POLYETHYLENE GLYCOL 3350
  9. POTASSIUM CHLORIDE. [Concomitant]
     Active Substance: POTASSIUM CHLORIDE
  10. ZINGIBER OFFICINALE [Concomitant]
     Active Substance: GINGER
  11. MESNA. [Concomitant]
     Active Substance: MESNA
  12. IFOSFAMIDE. [Concomitant]
     Active Substance: IFOSFAMIDE
  13. GLUCOSE [Concomitant]
     Active Substance: DEXTROSE

REACTIONS (8)
  - Product use in unapproved indication [Recovered/Resolved]
  - Chills [Recovered/Resolved]
  - Cough [Recovered/Resolved]
  - Bronchospasm [Recovered/Resolved]
  - Off label use [Recovered/Resolved]
  - Vomiting [Recovered/Resolved]
  - Eye swelling [Recovered/Resolved]
  - Lip swelling [Recovered/Resolved]
